FAERS Safety Report 24043524 (Version 1)
Quarter: 2024Q3

REPORT INFORMATION
  Report Type: Spontaneous
  Country: GB (occurrence: GB)
  Receive Date: 20240703
  Receipt Date: 20240703
  Transmission Date: 20241017
  Serious: Yes (Other)
  Sender: STRIDES
  Company Number: GB-STRIDES ARCOLAB LIMITED-2024SP007766

PATIENT
  Age: 55 Year
  Sex: Male

DRUGS (6)
  1. CYCLOSPORINE [Suspect]
     Active Substance: CYCLOSPORINE
     Indication: Angiolymphoid hyperplasia with eosinophilia
     Dosage: UNK
     Route: 065
  2. CYCLOSPORINE [Suspect]
     Active Substance: CYCLOSPORINE
     Indication: Disorder of orbit
  3. MYCOPHENOLATE MOFETIL [Suspect]
     Active Substance: MYCOPHENOLATE MOFETIL
     Indication: Angiolymphoid hyperplasia with eosinophilia
     Dosage: UNK
     Route: 065
  4. MYCOPHENOLATE MOFETIL [Suspect]
     Active Substance: MYCOPHENOLATE MOFETIL
     Indication: Disorder of orbit
  5. PREDNISOLONE [Concomitant]
     Active Substance: PREDNISOLONE
     Indication: Angiolymphoid hyperplasia with eosinophilia
     Dosage: 60 MILLIGRAM, QD
     Route: 065
  6. PREDNISOLONE [Concomitant]
     Active Substance: PREDNISOLONE
     Indication: Disorder of orbit
     Dosage: 5 MILLIGRAM, QD
     Route: 065

REACTIONS (3)
  - Depressed level of consciousness [Unknown]
  - Disturbance in attention [Unknown]
  - Off label use [Unknown]
